FAERS Safety Report 6726042-9 (Version None)
Quarter: 2010Q2

REPORT INFORMATION
  Report Type: 
  Country: None (occurrence: None)
  Receive Date: 20100514
  Receipt Date: 20100510
  Transmission Date: 20101027
  Serious: Yes (Other)
  Sender: FDA-Public Use
  Company Number: BE-MERCK-1005USA01378

PATIENT
  Age: 59 Year
  Sex: Female

DRUGS (1)
  1. PRINIVIL [Suspect]
     Route: 048

REACTIONS (4)
  - PARAESTHESIA ORAL [None]
  - PROTRUSION TONGUE [None]
  - RESPIRATORY DISTRESS [None]
  - SWOLLEN TONGUE [None]
